FAERS Safety Report 4271546-4 (Version None)
Quarter: 2004Q1

REPORT INFORMATION
  Report Type: 
  Country: None (occurrence: None)
  Receive Date: 20040113
  Receipt Date: 20040107
  Transmission Date: 20041129
  Serious: Yes (Hospitalization)
  Sender: FDA-Public Use
  Company Number: FR-JNJFOC-20040100762

PATIENT
  Age: 44 Year
  Sex: Female

DRUGS (7)
  1. SPORANOX [Suspect]
     Dosage: 400 MG 1 IN 1 DAY, ORAL
     Route: 048
     Dates: start: 20030815, end: 20030815
  2. LEVOTHYROXINE SODIUM [Suspect]
     Dosage: 100 UG/HR, ORAL
     Route: 048
  3. LEXOMIL (BROMAZEPAM) [Suspect]
     Dosage: 3 G, 1 IN 1 DAY, ORAL
     Route: 048
     Dates: start: 20020615, end: 20030522
  4. STILNOX (ZOLPIDEM) [Suspect]
     Dosage: 10 MG, 1 IN 1 DAY, ORAL
     Route: 048
     Dates: start: 20021015, end: 20030522
  5. OMEPRAZOLE [Suspect]
     Dosage: 20 MG, 1 IN 1 DAY, ORAL
     Route: 048
     Dates: start: 20020615, end: 20030522
  6. ACETAMINOPHEN [Suspect]
     Dosage: ORAL
     Route: 048
     Dates: end: 20030522
  7. AREDIA [Concomitant]

REACTIONS (3)
  - CONJUNCTIVAL HAEMORRHAGE [None]
  - DRUG HYPERSENSITIVITY [None]
  - THROMBOCYTOPENIA [None]
